FAERS Safety Report 4873489-1 (Version None)
Quarter: 2005Q4

REPORT INFORMATION
  Report Type: 
  Country: None (occurrence: None)
  Receive Date: 20051201
  Receipt Date: 20050823
  Transmission Date: 20060501
  Serious: No
  Sender: FDA-Public Use
  Company Number: 2005PV001405

PATIENT
  Age: 47 Year
  Sex: Male
  Weight: 112.4921 kg

DRUGS (7)
  1. BYETTA [Suspect]
     Indication: DIABETES MELLITUS NON-INSULIN-DEPENDENT
     Dosage: 10 MCG; 5 MCG : BID, SC
     Route: 058
     Dates: start: 20050615, end: 20050714
  2. BYETTA [Suspect]
     Indication: DIABETES MELLITUS NON-INSULIN-DEPENDENT
     Dosage: 10 MCG; 5 MCG : BID, SC
     Route: 058
     Dates: start: 20050715
  3. TRICOR [Concomitant]
  4. LIPITOR [Concomitant]
  5. ALTACE [Concomitant]
  6. WELLBUTRIN [Concomitant]
  7. ASPIRIN [Concomitant]

REACTIONS (5)
  - DECREASED APPETITE [None]
  - FATIGUE [None]
  - LETHARGY [None]
  - MYALGIA [None]
  - WEIGHT DECREASED [None]
